FAERS Safety Report 9901318 (Version 2)
Quarter: 2016Q1

REPORT INFORMATION
  Report Type: Spontaneous
  Country: US (occurrence: US)
  Receive Date: 20140217
  Receipt Date: 20160219
  Transmission Date: 20160526
  Serious: Yes (Other)
  Sender: FDA-Public Use
  Company Number: US-BAYER-2014-024535

PATIENT
  Age: 24 Year
  Sex: Female

DRUGS (1)
  1. MIRENA [Suspect]
     Active Substance: LEVONORGESTREL
     Indication: CONTRACEPTION
     Dosage: 20 MCG/24HR, CONT
     Route: 015
     Dates: start: 201012, end: 20130612

REACTIONS (9)
  - Medical device pain [None]
  - Pain [None]
  - Medical device discomfort [None]
  - Uterine perforation [None]
  - Scar [None]
  - Pregnancy with contraceptive device [None]
  - Drug ineffective [None]
  - Device failure [None]
  - Injury [None]

NARRATIVE: CASE EVENT DATE: 20130612
